FAERS Safety Report 5986824-8 (Version None)
Quarter: 2008Q4

REPORT INFORMATION
  Report Type: 
  Country: None (occurrence: None)
  Receive Date: 20081203
  Receipt Date: 20081128
  Transmission Date: 20090506
  Serious: Yes (Death)
  Sender: FDA-Public Use
  Company Number: 2008JP004867

PATIENT
  Age: 30 Year
  Sex: Female
  Weight: 57 kg

DRUGS (21)
  1. TACROLIMUS [Suspect]
     Indication: LUPUS NEPHRITIS
     Dosage: 2 MG, UNKNOWN/D, ORAL; 3 MG UNKNOWN/D ORAL
     Route: 048
     Dates: start: 20080326, end: 20080408
  2. TACROLIMUS [Suspect]
     Indication: LUPUS NEPHRITIS
     Dosage: 2 MG, UNKNOWN/D, ORAL; 3 MG UNKNOWN/D ORAL
     Route: 048
     Dates: start: 20080409, end: 20080615
  3. PREDNISOLONE [Suspect]
     Indication: LUPUS NEPHRITIS
     Dosage: SEE IMAGE
     Route: 048
     Dates: end: 20080405
  4. PREDNISOLONE [Suspect]
     Indication: LUPUS NEPHRITIS
     Dosage: SEE IMAGE
     Route: 048
     Dates: start: 20080406, end: 20080423
  5. PREDNISOLONE [Suspect]
     Indication: LUPUS NEPHRITIS
     Dosage: SEE IMAGE
     Route: 048
     Dates: start: 20080424, end: 20080507
  6. PREDNISOLONE [Suspect]
     Indication: LUPUS NEPHRITIS
     Dosage: SEE IMAGE
     Route: 048
     Dates: start: 20080508, end: 20080521
  7. PREDNISOLONE [Suspect]
     Indication: LUPUS NEPHRITIS
     Dosage: SEE IMAGE
     Route: 048
     Dates: start: 20080522, end: 20080604
  8. PREDNISOLONE [Suspect]
     Indication: LUPUS NEPHRITIS
     Dosage: SEE IMAGE
     Route: 048
     Dates: start: 20080605, end: 20080615
  9. DEPAKENE [Concomitant]
  10. TENORMIN [Concomitant]
  11. TAKEPRON (LANSPORAZOLE) ORODISPERSIBLE CR TABLET [Concomitant]
  12. INCREMIN SYRUP [Concomitant]
  13. LENDORM [Concomitant]
  14. MAGNESIUM OXIDE (MAGNESIUM OXIDE) [Concomitant]
  15. PRAVASTATIN [Concomitant]
  16. LAC B (LACTOBACILLUS BIFIDUS, LYOPHILIZED) [Concomitant]
  17. GLUCOBAY [Concomitant]
  18. ZETIA [Concomitant]
  19. OLMETEC (OLMESARTAN MEDOXOMIL) [Concomitant]
  20. BUP-4 (PROPIVERENE HYDROCHLORIDE) [Concomitant]
  21. LIPITOR [Concomitant]

REACTIONS (10)
  - ACUTE PRERENAL FAILURE [None]
  - ACUTE RESPIRATORY DISTRESS SYNDROME [None]
  - AMYLOIDOSIS [None]
  - BLOOD PRESSURE DECREASED [None]
  - DISSEMINATED INTRAVASCULAR COAGULATION [None]
  - HEART RATE DECREASED [None]
  - HEPATIC FUNCTION ABNORMAL [None]
  - PERIPHERAL CIRCULATORY FAILURE [None]
  - PNEUMOCYSTIS JIROVECI PNEUMONIA [None]
  - PNEUMONIA STAPHYLOCOCCAL [None]
